FAERS Safety Report 6676702-3 (Version None)
Quarter: 2010Q2

REPORT INFORMATION
  Report Type: 
  Country: None (occurrence: None)
  Receive Date: 20100412
  Receipt Date: 20100331
  Transmission Date: 20101027
  Serious: Yes (Hospitalization, Other)
  Sender: FDA-Public Use
  Company Number: US-ROCHE-650275

PATIENT
  Sex: Female
  Weight: 80.7 kg

DRUGS (1)
  1. CAPECITABINE [Suspect]
     Dosage: 4 TABS IN AM AND 3 TABS IN PM, 2 WEEKS ON AND 1 WEEK OFF.
     Route: 048
     Dates: start: 20090809, end: 20100308

REACTIONS (4)
  - BILE DUCT OBSTRUCTION [None]
  - GAIT DISTURBANCE [None]
  - MALIGNANT NEOPLASM PROGRESSION [None]
  - SKIN EXFOLIATION [None]
